FAERS Safety Report 7276762-5 (Version None)
Quarter: 2011Q1

REPORT INFORMATION
  Report Type: 
  Country: None (occurrence: None)
  Receive Date: 20110206
  Receipt Date: 20110113
  Transmission Date: 20110831
  Serious: No
  Sender: FDA-Public Use
  Company Number: US-BAYER-2011-004809

PATIENT
  Sex: Male
  Weight: 120.18 kg

DRUGS (4)
  1. ALEVE (CAPLET) [Suspect]
     Indication: PRODUCT USED FOR UNKNOWN INDICATION
     Dosage: DAILY DOSE 440 MG
     Dates: start: 20110102
  2. UNKNOWN [Concomitant]
  3. ASPIRIN [Concomitant]
     Dosage: 81 MG, UNK
  4. LISINOPRIL [Concomitant]

REACTIONS (3)
  - DYSPNOEA [None]
  - THROAT IRRITATION [None]
  - ERYTHEMA [None]
